FAERS Safety Report 23893111 (Version 2)
Quarter: 2024Q2

REPORT INFORMATION
  Report Type: Other
  Country: US (occurrence: None)
  Receive Date: 20240524
  Receipt Date: 20240610
  Transmission Date: 20240716
  Serious: Yes (Hospitalization)
  Sender: FDA-Public Use
  Company Number: US-ROCHE-3563145

PATIENT
  Age: 63 Year
  Sex: Male

DRUGS (1)
  1. OCREVUS [Suspect]
     Active Substance: OCRELIZUMAB
     Indication: Multiple sclerosis
     Dosage: ONGOING: YES
     Route: 065
     Dates: start: 20190402

REACTIONS (4)
  - Urinary tract infection [Unknown]
  - Pneumonia [Unknown]
  - Anaemia [Not Recovered/Not Resolved]
  - Infection [Recovered/Resolved]
